FAERS Safety Report 10532978 (Version 1)
Quarter: 2014Q4

REPORT INFORMATION
  Report Type: Spontaneous
  Country: US (occurrence: US)
  Receive Date: 20141022
  Receipt Date: 20141022
  Transmission Date: 20150529
  Serious: No
  Sender: FDA-Public Use
  Company Number: US-TEVA-451342USA

PATIENT
  Sex: Male

DRUGS (2)
  1. AMOXICILLIN W/CLAVULANIC ACID [Suspect]
     Active Substance: AMOXICILLIN\CLAVULANIC ACID
     Indication: DENTAL CARE
     Dosage: 500 MG/125 MG
     Route: 048
     Dates: start: 20130815
  2. DEXAMETHASONE. [Concomitant]
     Active Substance: DEXAMETHASONE

REACTIONS (5)
  - Acne [Unknown]
  - Rash [Unknown]
  - Eczema [Unknown]
  - Wound secretion [Recovering/Resolving]
  - Inflammation [Unknown]
